FAERS Safety Report 6955447-6 (Version None)
Quarter: 2010Q3

REPORT INFORMATION
  Report Type: 
  Country: None (occurrence: None)
  Receive Date: 20100830
  Receipt Date: 20100820
  Transmission Date: 20110219
  Serious: Yes (Other)
  Sender: FDA-Public Use
  Company Number: US-SANOFI-AVENTIS-2010SA050272

PATIENT

DRUGS (1)
  1. LANTUS [Suspect]

REACTIONS (1)
  - EYE HAEMORRHAGE [None]
